FAERS Safety Report 7494312-5 (Version None)
Quarter: 2011Q2

REPORT INFORMATION
  Report Type: 
  Country: None (occurrence: None)
  Receive Date: 20110520
  Receipt Date: 20110512
  Transmission Date: 20111010
  Serious: Yes (Other)
  Sender: FDA-Public Use
  Company Number: PHHY2011IT39993

PATIENT
  Sex: Female

DRUGS (3)
  1. LANSOPRAZOLE [Suspect]
     Dosage: UNK
  2. DICLOFENAC SODIUM [Suspect]
     Dosage: UNK
  3. RIFAXIMIN [Suspect]
     Dosage: UNK

REACTIONS (2)
  - PHARYNGEAL OEDEMA [None]
  - FACE OEDEMA [None]
